FAERS Safety Report 23991236 (Version 1)
Quarter: 2024Q2

REPORT INFORMATION
  Report Type: Spontaneous
  Country: US (occurrence: US)
  Receive Date: 20240619
  Receipt Date: 20240619
  Transmission Date: 20240715
  Serious: No
  Sender: FDA-Public Use
  Company Number: US-PFIZER INC-202400195219

PATIENT
  Age: 76 Year
  Sex: Female

DRUGS (2)
  1. XELJANZ XR [Suspect]
     Active Substance: TOFACITINIB CITRATE
     Dosage: 1 DF, 1X/DAY
     Dates: start: 20240212
  2. XELJANZ [Suspect]
     Active Substance: TOFACITINIB CITRATE
     Dosage: TWO 5MG TABS PER DAY

REACTIONS (1)
  - Sciatica [Not Recovered/Not Resolved]
